FAERS Safety Report 7772658-0 (Version None)
Quarter: 2011Q3

REPORT INFORMATION
  Report Type: 
  Country: None (occurrence: None)
  Receive Date: 20110922
  Receipt Date: 20110103
  Transmission Date: 20111222
  Serious: No
  Sender: FDA-Public Use
  Company Number: US-ASTRAZENECA-2011SE00312

PATIENT
  Age: 40 Year
  Sex: Male
  Weight: 91.6 kg

DRUGS (18)
  1. PRILOSEC [Concomitant]
  2. SEROQUEL XR [Suspect]
     Route: 048
     Dates: start: 20100101, end: 20101217
  3. TEMAZEPAM [Concomitant]
     Indication: SLEEP DISORDER
  4. SEROQUEL XR [Suspect]
     Indication: POST-TRAUMATIC STRESS DISORDER
     Route: 048
     Dates: start: 20101101, end: 20100101
  5. PERCOCET [Concomitant]
     Dosage: 5/235 MG DAILY
  6. FERROUS SULFATE TAB [Concomitant]
  7. POTASSIUM [Concomitant]
  8. SEROQUEL XR [Suspect]
     Indication: PARANOIA
     Route: 048
     Dates: start: 20101101, end: 20100101
  9. SEROQUEL XR [Suspect]
     Indication: DEPRESSION
     Route: 048
     Dates: start: 20101101, end: 20100101
  10. ZYPREXA [Concomitant]
  11. VALIUM [Concomitant]
  12. MULTI-VITAMIN [Concomitant]
  13. ROBAXIN [Concomitant]
  14. SEROQUEL XR [Suspect]
     Indication: SLEEP DISORDER
     Route: 048
     Dates: start: 20101101, end: 20100101
  15. SEROQUEL XR [Suspect]
     Route: 048
     Dates: start: 20100101, end: 20101217
  16. SEROQUEL XR [Suspect]
     Route: 048
     Dates: start: 20100101, end: 20101217
  17. TEGRETOL [Concomitant]
  18. SEROQUEL XR [Suspect]
     Route: 048
     Dates: start: 20100101, end: 20101217

REACTIONS (6)
  - SLEEP DISORDER [None]
  - DYSKINESIA [None]
  - MOOD SWINGS [None]
  - WEIGHT INCREASED [None]
  - ANXIETY [None]
  - SOMNAMBULISM [None]
